FAERS Safety Report 9458449 (Version 4)
Quarter: 2014Q1

REPORT INFORMATION
  Report Type: Report from Study
  Country: JP (occurrence: JP)
  Receive Date: 20130814
  Receipt Date: 20140313
  Transmission Date: 20141002
  Serious: Yes (Other)
  Sender: FDA-Public Use
  Company Number: JP-JNJFOC-20130806076

PATIENT
  Age: 87 Year
  Sex: Female
  Weight: 31 kg

DRUGS (16)
  1. SIMPONI [Suspect]
     Indication: RHEUMATOID ARTHRITIS
     Route: 058
     Dates: start: 20120501, end: 20120501
  2. SIMPONI [Suspect]
     Indication: RHEUMATOID ARTHRITIS
     Route: 058
     Dates: start: 20120327, end: 20120327
  3. SIMPONI [Suspect]
     Indication: RHEUMATOID ARTHRITIS
     Route: 058
     Dates: start: 20120301, end: 20120301
  4. SIMPONI [Suspect]
     Indication: RHEUMATOID ARTHRITIS
     Route: 058
     Dates: start: 20120202, end: 20120202
  5. METHOTREXATE [Concomitant]
     Indication: RHEUMATOID ARTHRITIS
     Route: 065
     Dates: start: 20111213
  6. METHOTREXATE [Concomitant]
     Indication: RHEUMATOID ARTHRITIS
     Route: 065
     Dates: end: 20111212
  7. BREDININ [Concomitant]
     Indication: RHEUMATOID ARTHRITIS
     Route: 048
     Dates: end: 20120531
  8. PREDONINE [Concomitant]
     Indication: RHEUMATOID ARTHRITIS
     Route: 048
  9. LOXONIN [Concomitant]
     Indication: RHEUMATOID ARTHRITIS
     Route: 065
     Dates: end: 20120531
  10. CELECOX [Concomitant]
     Indication: RHEUMATOID ARTHRITIS
     Route: 048
     Dates: start: 20120605
  11. FOLIAMIN [Concomitant]
     Indication: PROPHYLAXIS
     Route: 065
  12. BENET [Concomitant]
     Route: 048
  13. ONEALFA [Concomitant]
     Route: 048
  14. TAKEPRON [Concomitant]
     Indication: GASTRIC ULCER
     Route: 065
  15. MUCOSTA [Concomitant]
     Indication: PROPHYLAXIS
     Route: 065
  16. AMOBAN [Concomitant]
     Route: 048

REACTIONS (1)
  - Interstitial lung disease [Recovering/Resolving]
